FAERS Safety Report 15031370 (Version 1)
Quarter: 2018Q2

REPORT INFORMATION
  Report Type: Spontaneous
  Country: US (occurrence: US)
  Receive Date: 20180529
  Receipt Date: 20180529
  Transmission Date: 20180711
  Serious: Yes (Hospitalization)
  Sender: FDA-Public Use
  Company Number: None

PATIENT
  Age: 59 Year
  Sex: Male
  Weight: 110.4 kg

DRUGS (1)
  1. PRAZOSIN. [Suspect]
     Active Substance: PRAZOSIN
     Indication: NIGHTMARE
     Route: 048
     Dates: start: 20180201, end: 20180305

REACTIONS (8)
  - Seizure [None]
  - Loss of consciousness [None]
  - Fall [None]
  - Cerebral haemorrhage [None]
  - Migraine [None]
  - Tongue biting [None]
  - Syncope [None]
  - Traumatic haemorrhage [None]

NARRATIVE: CASE EVENT DATE: 20180228
